FAERS Safety Report 10020888 (Version 1)
Quarter: 2014Q1

REPORT INFORMATION
  Report Type: Spontaneous
  Country: US (occurrence: US)
  Receive Date: 20140319
  Receipt Date: 20140319
  Transmission Date: 20141002
  Serious: No
  Sender: FDA-Public Use
  Company Number: US-JNJFOC-20140211626

PATIENT
  Age: 32 Year
  Sex: Female
  Weight: 90.72 kg

DRUGS (3)
  1. INVEGA SUSTENNA [Suspect]
     Indication: SCHIZOPHRENIA
     Route: 030
  2. FANAPT [Concomitant]
     Route: 065
  3. KLONOPIN [Concomitant]
     Route: 065

REACTIONS (1)
  - Injection site nodule [Unknown]
